FAERS Safety Report 17167451 (Version 12)
Quarter: 2023Q1

REPORT INFORMATION
  Report Type: Other
  Country: US (occurrence: US)
  Receive Date: 20191217
  Receipt Date: 20230331
  Transmission Date: 20230418
  Serious: Yes (Other)
  Sender: FDA-Public Use
  Company Number: US-ROCHE-2465502

PATIENT
  Age: 67 Year
  Sex: Male
  Weight: 74.910 kg

DRUGS (19)
  1. PULMOZYME [Suspect]
     Active Substance: DORNASE ALFA
     Indication: Bronchiectasis
     Dosage: NEBULIZE THE CONTENTS OF 1 VIAL(S) BY MOUTH TWICE A DAY ,THERAPY ONGOING:YES
     Route: 055
  2. PULMOZYME [Suspect]
     Active Substance: DORNASE ALFA
     Indication: Pneumonia
     Dosage: 1 MG/ML (75 ML) ;ONGOING: YES
     Route: 055
     Dates: start: 20190206
  3. PULMOZYME [Suspect]
     Active Substance: DORNASE ALFA
     Indication: Bronchiectasis
     Dosage: 2.5 MG PER VIAL
     Route: 055
     Dates: start: 201902
  4. PULMOZYME [Suspect]
     Active Substance: DORNASE ALFA
     Indication: Bacterial infection
     Dosage: NEBULIZE THE CONTENTS OF 1 VIAL(S) TWICE A DAY
     Route: 055
  5. PULMOZYME [Suspect]
     Active Substance: DORNASE ALFA
     Indication: Bronchiectasis
     Route: 055
  6. PULMOZYME [Suspect]
     Active Substance: DORNASE ALFA
     Dosage: NEBULIZE THE CONTENTS OF 1 VIAL(S) TWICE A DAY
     Route: 065
  7. SODIUM CHLORIDE [Concomitant]
     Active Substance: SODIUM CHLORIDE
     Indication: Chronic sinusitis
     Dosage: ONGOING: YES
     Route: 055
     Dates: start: 2018
  8. LEVALBUTEROL [Concomitant]
     Active Substance: LEVALBUTEROL
     Indication: Asthma
     Dosage: ONGOING: YES (0.63 MG IN 3 ML VIAL)
     Route: 055
     Dates: start: 2018
  9. FLECAINIDE [Concomitant]
     Active Substance: FLECAINIDE
     Indication: Atrial fibrillation
     Dosage: ONGOING: YES
     Route: 048
  10. VERAPAMIL [Concomitant]
     Active Substance: VERAPAMIL HYDROCHLORIDE
     Dosage: ONGOING: YES
     Route: 048
  11. PRAVASTATIN [Concomitant]
     Active Substance: PRAVASTATIN
     Indication: Blood cholesterol
     Dosage: ONGOING: YES
     Route: 048
  12. SINGULAIR [Concomitant]
     Active Substance: MONTELUKAST SODIUM
     Dosage: ONGOING: YES
     Route: 048
  13. BREO ELLIPTA [Concomitant]
     Active Substance: FLUTICASONE FUROATE\VILANTEROL TRIFENATATE
     Indication: Asthma
     Dosage: DOSE: 100/25 ;ONGOING: YES
     Route: 055
  14. SODIUM BICARBONATE\SODIUM CHLORIDE [Concomitant]
     Active Substance: SODIUM BICARBONATE\SODIUM CHLORIDE
     Dosage: ADDS BABY SHAMPOO TO IT ;ONGOING: YES
  15. VITAMIN D3 [Concomitant]
     Active Substance: CHOLECALCIFEROL
  16. VITAMIN C [Concomitant]
     Active Substance: ASCORBIC ACID
  17. ZINC [Concomitant]
     Active Substance: ZINC
  18. FISH OIL [Concomitant]
     Active Substance: FISH OIL
  19. HERBALS\TURMERIC [Concomitant]
     Active Substance: HERBALS\TURMERIC

REACTIONS (12)
  - Brain hypoxia [Unknown]
  - Pulmonary congestion [Not Recovered/Not Resolved]
  - COVID-19 [Recovered/Resolved]
  - Weight decreased [Not Recovered/Not Resolved]
  - Appetite disorder [Not Recovered/Not Resolved]
  - Migraine [Not Recovered/Not Resolved]
  - Pulmonary congestion [Not Recovered/Not Resolved]
  - Off label use [Unknown]
  - Dry eye [Not Recovered/Not Resolved]
  - Pneumonia [Unknown]
  - Weight increased [Unknown]
  - Treatment noncompliance [Unknown]

NARRATIVE: CASE EVENT DATE: 20190201
